FAERS Safety Report 8915542 (Version 2)
Quarter: 2012Q4

REPORT INFORMATION
  Report Type: 
  Country: NL (occurrence: NL)
  Receive Date: 20121119
  Receipt Date: 20121212
  Transmission Date: 20130627
  Serious: Yes (Other)
  Sender: FDA-Public Use
  Company Number: NL-GILEAD-2012-0064664

PATIENT
  Age: 45 Year
  Sex: Female

DRUGS (3)
  1. EVIPLERA [Suspect]
     Indication: HIV INFECTION
     Dosage: 1 DF, QD
     Route: 048
     Dates: start: 20121018, end: 20121109
  2. CETIRIZINE [Concomitant]
  3. SALBUTAMOL [Concomitant]
     Dosage: UNK

REACTIONS (2)
  - Antiviral drug level above therapeutic [Unknown]
  - Dizziness [Recovered/Resolved]
